FAERS Safety Report 6912517-6 (Version None)
Quarter: 2010Q3

REPORT INFORMATION
  Report Type: 
  Country: None (occurrence: None)
  Receive Date: 20100806
  Receipt Date: 20080808
  Transmission Date: 20110219
  Serious: No
  Sender: FDA-Public Use
  Company Number: US-PFIZER INC-2008054495

PATIENT
  Sex: Female
  Weight: 67 kg

DRUGS (2)
  1. MISOPROSTOL [Suspect]
     Indication: ABORTION INDUCED
     Route: 067
     Dates: start: 20080626
  2. MISOPROSTOL [Suspect]
     Indication: OFF LABEL USE

REACTIONS (2)
  - INTENTIONAL DRUG MISUSE [None]
  - OFF LABEL USE [None]
